FAERS Safety Report 9802465 (Version 2)
Quarter: 2014Q1

REPORT INFORMATION
  Report Type: Spontaneous
  Country: IT (occurrence: IT)
  Receive Date: 20140107
  Receipt Date: 20140115
  Transmission Date: 20141002
  Serious: Yes (Life-Threatening)
  Sender: FDA-Public Use
  Company Number: PHHY2014IT000693

PATIENT
  Sex: Female

DRUGS (3)
  1. PACLITAXEL SANDOZ [Suspect]
     Indication: BREAST CANCER
     Dosage: 20 MG, QW
     Route: 042
     Dates: start: 20131014, end: 20131227
  2. PACLITAXEL TEVA [Suspect]
     Indication: BREAST CANCER
     Dosage: 100 MG, QW
     Route: 042
     Dates: start: 20131014, end: 20131227
  3. HERCEPTIN [Concomitant]
     Route: 042
     Dates: start: 20131014, end: 20131227

REACTIONS (1)
  - Pulmonary oedema [Recovered/Resolved]
